FAERS Safety Report 9132684 (Version 1)
Quarter: 2013Q1

REPORT INFORMATION
  Report Type: Report from Study
  Country: US (occurrence: US)
  Receive Date: 20130301
  Receipt Date: 20130301
  Transmission Date: 20140127
  Serious: Yes (Other)
  Sender: FDA-Public Use
  Company Number: US-ROCHE-1195950

PATIENT
  Age: 59 Year
  Sex: Male

DRUGS (1)
  1. LUCENTIS [Suspect]
     Indication: NEOVASCULARISATION
     Route: 050
     Dates: start: 20130221

REACTIONS (2)
  - Blindness transient [Recovered/Resolved]
  - Eye pain [Recovered/Resolved]
